FAERS Safety Report 25353231 (Version 2)
Quarter: 2025Q2

REPORT INFORMATION
  Report Type: Spontaneous
  Country: US (occurrence: US)
  Receive Date: 20250523
  Receipt Date: 20250529
  Transmission Date: 20250716
  Serious: Yes (Other)
  Sender: TEVA
  Company Number: US-TEVA-VS-3333498

PATIENT
  Age: 56 Year
  Sex: Female

DRUGS (1)
  1. PREDNISONE [Suspect]
     Active Substance: PREDNISONE
     Indication: Asthma
     Route: 065

REACTIONS (3)
  - Pseudo Cushing^s syndrome [Recovering/Resolving]
  - Optic neuropathy [Recovered/Resolved]
  - Disorder of orbit [Recovering/Resolving]
